FAERS Safety Report 19221053 (Version 1)
Quarter: 2021Q2

REPORT INFORMATION
  Report Type: Spontaneous
  Country: US (occurrence: US)
  Receive Date: 20210506
  Receipt Date: 20210506
  Transmission Date: 20210717
  Serious: Yes (Disabling)
  Sender: FDA-Public Use
  Company Number: US-ORGANON-O2105USA000057

PATIENT
  Age: 13 Year
  Sex: Female

DRUGS (1)
  1. SINEMET [Suspect]
     Active Substance: CARBIDOPA\LEVODOPA
     Indication: PARKINSONISM
     Dosage: 10/100 MG THREE TIMES DAILY
     Route: 048

REACTIONS (2)
  - Dyskinesia [Recovering/Resolving]
  - Dizziness postural [Unknown]
